FAERS Safety Report 19256198 (Version 1)
Quarter: 2021Q2

REPORT INFORMATION
  Report Type: Spontaneous
  Country: US (occurrence: US)
  Receive Date: 20210513
  Receipt Date: 20210513
  Transmission Date: 20210717
  Serious: Yes (Other)
  Sender: FDA-Public Use
  Company Number: US-ASTRAZENECA-2021A407016

PATIENT
  Sex: Female

DRUGS (1)
  1. BYDUREON [Suspect]
     Active Substance: EXENATIDE
     Indication: GLYCOSYLATED HAEMOGLOBIN
     Route: 065

REACTIONS (10)
  - Disease progression [Unknown]
  - Thyroid disorder [Unknown]
  - Pneumonitis [Unknown]
  - Cardiac disorder [Unknown]
  - Chondropathy [Unknown]
  - Inflammation [Unknown]
  - Diabetes mellitus [Unknown]
  - Pain [Unknown]
  - Fibromyalgia [Unknown]
  - Malaise [Unknown]
